FAERS Safety Report 19099497 (Version 2)
Quarter: 2021Q2

REPORT INFORMATION
  Report Type: Report from Study
  Country: MY (occurrence: MY)
  Receive Date: 20210406
  Receipt Date: 20210524
  Transmission Date: 20210717
  Serious: Yes (Hospitalization, Other)
  Sender: FDA-Public Use
  Company Number: MY-SEATTLE GENETICS-2021SGN01989

PATIENT
  Sex: Female

DRUGS (1)
  1. BRENTUXIMAB VEDOTIN [Suspect]
     Active Substance: BRENTUXIMAB VEDOTIN
     Indication: HODGKIN^S DISEASE REFRACTORY
     Dosage: 117 MILLIGRAM, Q3WEEKS
     Route: 042
     Dates: start: 20201117, end: 20210302

REACTIONS (9)
  - Pulmonary mass [Unknown]
  - Hepatic enzyme abnormal [Recovering/Resolving]
  - Drug ineffective [Unknown]
  - Hodgkin^s disease [Unknown]
  - Pancreatitis acute [Unknown]
  - Abdominal discomfort [Unknown]
  - Malaise [Unknown]
  - Pancreatic mass [Unknown]
  - Dyspnoea [Unknown]
